FAERS Safety Report 12899228 (Version 1)
Quarter: 2016Q4

REPORT INFORMATION
  Report Type: Spontaneous
  Country: PH (occurrence: PH)
  Receive Date: 20161101
  Receipt Date: 20161101
  Transmission Date: 20170207
  Serious: Yes (Death)
  Sender: FDA-Public Use
  Company Number: PH-ROCHE-1848601

PATIENT
  Age: 52 Year

DRUGS (1)
  1. AVASTIN [Suspect]
     Active Substance: BEVACIZUMAB
     Indication: ENDOMETRIAL CANCER
     Route: 065

REACTIONS (3)
  - White blood cell count decreased [Fatal]
  - Neutrophil count decreased [Fatal]
  - Infection [Fatal]
